FAERS Safety Report 5288604-8 (Version None)
Quarter: 2007Q1

REPORT INFORMATION
  Report Type: 
  Country: None (occurrence: None)
  Receive Date: 20070330
  Receipt Date: 20070319
  Transmission Date: 20070707
  Serious: Yes (Life-Threatening, Hospitalization, Other)
  Sender: FDA-Public Use
  Company Number: 2007RR-06469

PATIENT
  Age: 63 Year
  Sex: Male

DRUGS (7)
  1. LISINOPRIL [Suspect]
     Dosage: 10 MG, QD, ORAL
     Route: 048
     Dates: end: 20070107
  2. BECLOMETHASONE DIPROPIONATE [Concomitant]
  3. OMEPRAZOLE [Concomitant]
  4. PARACETAMOL (ACETAMINOPHEN/PARACETAMOL) [Concomitant]
  5. SALBUTAMOL (SALBUTAMOL) [Concomitant]
  6. SALMETEROL [Concomitant]
  7. TRIMOVATE [Concomitant]

REACTIONS (1)
  - PANCREATITIS NECROTISING [None]
